FAERS Safety Report 7285029-0 (Version None)
Quarter: 2011Q1

REPORT INFORMATION
  Report Type: 
  Country: None (occurrence: None)
  Receive Date: 20110210
  Receipt Date: 20110204
  Transmission Date: 20110831
  Serious: Yes (Hospitalization)
  Sender: FDA-Public Use
  Company Number: DE-BAXTER-2011BH002866

PATIENT
  Age: 66 Year
  Sex: Male

DRUGS (1)
  1. GAMMAGARD LIQUID [Suspect]
     Indication: PRODUCT USED FOR UNKNOWN INDICATION
     Route: 065
     Dates: start: 20110202, end: 20110202

REACTIONS (4)
  - PYREXIA [None]
  - CHILLS [None]
  - MALAISE [None]
  - FLUSHING [None]
